FAERS Safety Report 11325257 (Version 1)
Quarter: 2015Q3

REPORT INFORMATION
  Report Type: Report from Study
  Country: BR (occurrence: BR)
  Receive Date: 20150730
  Receipt Date: 20150730
  Transmission Date: 20151125
  Serious: Yes (Other)
  Sender: FDA-Public Use
  Company Number: BR-BAXTER-2015BAX041795

PATIENT
  Age: 32 Week
  Sex: Male

DRUGS (10)
  1. REMIFENTANIL [Suspect]
     Active Substance: REMIFENTANIL
     Indication: FOETAL EXPOSURE TIMING UNSPECIFIED
     Route: 064
  2. ATOSIBAN [Suspect]
     Active Substance: ATOSIBAN
     Indication: FOETAL EXPOSURE TIMING UNSPECIFIED
     Route: 064
  3. AMPICILLIN [Suspect]
     Active Substance: AMPICILLIN
     Indication: FOETAL EXPOSURE TIMING UNSPECIFIED
     Route: 064
  4. CELLULOSE [Suspect]
     Active Substance: POWDERED CELLULOSE
     Indication: PRODUCT USED FOR UNKNOWN INDICATION
     Dosage: CELLULOSE PATCH
     Route: 065
  5. ROCURONIUM [Suspect]
     Active Substance: ROCURONIUM BROMIDE
     Indication: FOETAL EXPOSURE TIMING UNSPECIFIED
     Route: 064
  6. PROPOFOL. [Suspect]
     Active Substance: PROPOFOL
     Indication: FOETAL EXPOSURE TIMING UNSPECIFIED
     Route: 064
  7. ATOSIBAN [Suspect]
     Active Substance: ATOSIBAN
     Route: 064
  8. SEVONESS [Suspect]
     Active Substance: SEVOFLURANE
     Indication: FOETAL EXPOSURE TIMING UNSPECIFIED
     Route: 064
  9. CLORETO DE S?DIO - BAXTER [Suspect]
     Active Substance: SODIUM CHLORIDE
     Indication: FOETAL EXPOSURE TIMING UNSPECIFIED
     Route: 064
  10. ATOSIBAN [Suspect]
     Active Substance: ATOSIBAN
     Route: 064

REACTIONS (2)
  - Premature baby [Recovered/Resolved]
  - Foetal exposure during pregnancy [Recovered/Resolved]
